FAERS Safety Report 8385913-0 (Version None)
Quarter: 2012Q2

REPORT INFORMATION
  Report Type: 
  Country: None (occurrence: None)
  Receive Date: 20120523
  Receipt Date: 20120502
  Transmission Date: 20120825
  Serious: Yes (Hospitalization, Other)
  Sender: FDA-Public Use
  Company Number: 2012P1003946

PATIENT
  Age: 45 Year
  Sex: Female

DRUGS (5)
  1. FENTANYL-100 [Suspect]
     Indication: INTERVERTEBRAL DISC DEGENERATION
     Dosage: 1 PATCH; Q72H; TDER, 1 PATCH; Q72H; TDER
     Route: 062
     Dates: start: 20110601
  2. FENTANYL-100 [Suspect]
     Indication: ARTHRITIS
     Dosage: 1 PATCH; Q72H; TDER, 1 PATCH; Q72H; TDER
     Route: 062
     Dates: start: 20110601
  3. FENTANYL-100 [Suspect]
     Indication: INTERVERTEBRAL DISC DEGENERATION
     Dosage: 1 PATCH; Q72H; TDER, 1 PATCH; Q72H; TDER
     Route: 062
     Dates: start: 20120101
  4. FENTANYL-100 [Suspect]
     Indication: ARTHRITIS
     Dosage: 1 PATCH; Q72H; TDER, 1 PATCH; Q72H; TDER
     Route: 062
     Dates: start: 20120101
  5. FENTANYL-100 [Suspect]

REACTIONS (15)
  - POST-TRAUMATIC STRESS DISORDER [None]
  - LIMB INJURY [None]
  - WRONG TECHNIQUE IN DRUG USAGE PROCESS [None]
  - APPLICATION SITE PRURITUS [None]
  - APPLICATION SITE RASH [None]
  - PRODUCT QUALITY ISSUE [None]
  - PRODUCT SUBSTITUTION ISSUE [None]
  - APPLICATION SITE ERYTHEMA [None]
  - SUICIDAL IDEATION [None]
  - PARTNER STRESS [None]
  - THERAPEUTIC PRODUCT INEFFECTIVE [None]
  - MENTAL DISORDER [None]
  - NASOPHARYNGITIS [None]
  - PRODUCT ADHESION ISSUE [None]
  - ONYCHOMADESIS [None]
